FAERS Safety Report 9047391 (Version 1)
Quarter: 2013Q1

REPORT INFORMATION
  Report Type: Report from Study
  Country: US (occurrence: US)
  Receive Date: 20130201
  Receipt Date: 20130201
  Transmission Date: 20140127
  Serious: No
  Sender: FDA-Public Use
  Company Number: US-ABBOTT-12P-163-1024230-00

PATIENT
  Age: 43 Year
  Sex: Male

DRUGS (6)
  1. HUMIRA [Suspect]
     Indication: CROHN^S DISEASE
     Dates: start: 20121016
  2. LOSARTAN [Concomitant]
     Indication: HYPERTENSION
     Dosage: 12.5MG DAILY
  3. OMEPRAZOLE [Concomitant]
     Indication: GASTROOESOPHAGEAL REFLUX DISEASE
     Dosage: 40MG DAILY
  4. AMLODIPINE [Concomitant]
     Indication: HYPERTENSION
     Dosage: 10MG DAILY
  5. HYDROCHLOROTHIAZIDE [Concomitant]
     Indication: HYPERTENSION
     Dosage: 25MG DAILY
  6. METOPROLOL [Concomitant]
     Indication: HEART RATE DECREASED
     Dosage: 50MG DAILY

REACTIONS (6)
  - Dyspepsia [Unknown]
  - Headache [Unknown]
  - Poor quality sleep [Unknown]
  - Injection site pain [Unknown]
  - Injection site bruising [Unknown]
  - Drug dose omission [Unknown]
